FAERS Safety Report 8342357-5 (Version None)
Quarter: 2012Q2

REPORT INFORMATION
  Report Type: 
  Country: None (occurrence: None)
  Receive Date: 20120508
  Receipt Date: 20120427
  Transmission Date: 20120825
  Serious: Yes (Other)
  Sender: FDA-Public Use
  Company Number: US-AMGEN-USASP2012012354

PATIENT
  Age: 63 Year
  Sex: Male

DRUGS (11)
  1. ATENOLOL [Concomitant]
     Dosage: 1 MG, UNK
  2. BENICAR HCT [Concomitant]
     Dosage: 1 MG, UNK
  3. FOLIC ACID [Concomitant]
     Dosage: 1 MG, UNK
  4. METHOTREXATE [Concomitant]
     Dosage: 2.5 MG, QWK
     Dates: start: 20110101, end: 20120201
  5. VITAMIN D [Concomitant]
     Dosage: 1 UNK, UNK
  6. ENBREL [Suspect]
     Indication: RHEUMATOID ARTHRITIS
     Dosage: 50 MG, QWK
     Route: 058
     Dates: start: 20111129, end: 20120201
  7. OMEPRAZOLE [Concomitant]
     Dosage: 1 MG, UNK
  8. GLIPIZIDE [Concomitant]
     Dosage: 1 MG, UNK
  9. ASPIRINE EC [Concomitant]
     Dosage: 1 MG, UNK
  10. GABAPENTIN [Concomitant]
     Dosage: UNK MG, UNK
  11. FISH OIL [Concomitant]
     Dosage: 1 MG, UNK

REACTIONS (14)
  - SPLENOMEGALY [None]
  - SPLEEN DISORDER [None]
  - KIDNEY ENLARGEMENT [None]
  - INJECTION SITE HAEMORRHAGE [None]
  - BLOOD UREA INCREASED [None]
  - NASOPHARYNGITIS [None]
  - TYPE 2 DIABETES MELLITUS [None]
  - BLOOD CREATININE INCREASED [None]
  - LABORATORY TEST ABNORMAL [None]
  - GAIT DISTURBANCE [None]
  - LUNG NEOPLASM [None]
  - DRUG INEFFECTIVE [None]
  - LIVER DISORDER [None]
  - HEPATIC ENZYME INCREASED [None]
